FAERS Safety Report 9838756 (Version 1)
Quarter: 2013Q4

REPORT INFORMATION
  Report Type: Spontaneous
  Country: US (occurrence: None)
  Receive Date: 20131206
  Receipt Date: 20131206
  Transmission Date: 20140711
  Serious: Yes (Other)
  Sender: FDA-Public Use
  Company Number: 378370

PATIENT
  Age: 71 Year
  Sex: Male
  Weight: 77.6 kg

DRUGS (1)
  1. NOVOLOG [Suspect]
     Indication: TYPE 1 DIABETES MELLITUS
     Dosage: UNK, SUBCUTAN. -PUMP
     Route: 058
     Dates: start: 2008

REACTIONS (3)
  - Product quality issue [None]
  - Blood glucose fluctuation [None]
  - Blood glucose increased [None]
